FAERS Safety Report 8816344 (Version 1)
Quarter: 2012Q4

REPORT INFORMATION
  Report Type: Spontaneous
  Country: US (occurrence: None)
  Receive Date: 20120927
  Receipt Date: 20120927
  Transmission Date: 20130627
  Serious: Yes (Hospitalization)
  Sender: FDA-Public Use
  Company Number: None

PATIENT
  Sex: Male
  Weight: 94.1 kg

DRUGS (6)
  1. CYCLOPHOSPHAMIDE [Suspect]
  2. DOXORUBICIN HYDROCHLORIDE [Suspect]
  3. ETOPOSIDE [Suspect]
  4. PREDNISONE [Suspect]
  5. RITUXIMAB [Suspect]
  6. VINCRISTINE SULFATE [Suspect]

REACTIONS (10)
  - Febrile neutropenia [None]
  - Diarrhoea [None]
  - Abdominal pain [None]
  - Malaise [None]
  - Colitis [None]
  - White blood cell count decreased [None]
  - Haemoglobin decreased [None]
  - Platelet count decreased [None]
  - Nausea [None]
  - Vomiting [None]
